FAERS Safety Report 7501130-8 (Version None)
Quarter: 2011Q2

REPORT INFORMATION
  Report Type: 
  Country: None (occurrence: None)
  Receive Date: 20110524
  Receipt Date: 20110519
  Transmission Date: 20111010
  Serious: Yes (Other)
  Sender: FDA-Public Use
  Company Number: JP-SANOFI-AVENTIS-2011SA031290

PATIENT
  Age: 65 Year
  Sex: Male
  Weight: 44.4 kg

DRUGS (3)
  1. RILUTEK [Suspect]
     Indication: AMYOTROPHIC LATERAL SCLEROSIS
     Route: 048
     Dates: start: 20081117
  2. DEPROMEL [Concomitant]
     Route: 048
     Dates: start: 20080513, end: 20080630
  3. DEPROMEL [Concomitant]
     Route: 048
     Dates: start: 20080701

REACTIONS (2)
  - BLOOD POTASSIUM DECREASED [None]
  - BLOOD SODIUM DECREASED [None]
